FAERS Safety Report 7112239-5 (Version None)
Quarter: 2010Q4

REPORT INFORMATION
  Report Type: 
  Country: None (occurrence: None)
  Receive Date: 20101119
  Receipt Date: 20100503
  Transmission Date: 20110411
  Serious: No
  Sender: FDA-Public Use
  Company Number: A0855685A

PATIENT
  Age: 89 Year
  Sex: Male

DRUGS (6)
  1. AVODART [Suspect]
     Indication: BENIGN PROSTATIC HYPERPLASIA
     Dosage: .5MG PER DAY
     Route: 048
     Dates: start: 20090401
  2. VESICARE [Concomitant]
  3. ASPIRIN [Concomitant]
  4. PREVACID [Concomitant]
  5. CENTRUM SILVER [Concomitant]
  6. ZINC OINTMENT [Concomitant]

REACTIONS (3)
  - APHONIA [None]
  - PRURITUS [None]
  - SWELLING [None]
